FAERS Safety Report 23401776 (Version 2)
Quarter: 2024Q1

REPORT INFORMATION
  Report Type: Spontaneous
  Country: FI (occurrence: FI)
  Receive Date: 20240115
  Receipt Date: 20240219
  Transmission Date: 20240409
  Serious: Yes (Hospitalization, Other)
  Sender: FDA-Public Use
  Company Number: FI-009507513-2401FIN006052

PATIENT
  Age: 65 Year
  Sex: Male

DRUGS (1)
  1. KEYTRUDA [Suspect]
     Active Substance: PEMBROLIZUMAB
     Indication: Lung cancer metastatic
     Dosage: 200 MILLIGRAM, Q3W
     Route: 042
     Dates: start: 20210201, end: 20211012

REACTIONS (3)
  - Intestinal perforation [Recovered/Resolved]
  - Small intestinal stenosis [Recovered/Resolved]
  - Immune-mediated hyperthyroidism [Recovered/Resolved]

NARRATIVE: CASE EVENT DATE: 20211011
